FAERS Safety Report 13485701 (Version 1)
Quarter: 2017Q2

REPORT INFORMATION
  Report Type: Spontaneous
  Country: FR (occurrence: FR)
  Receive Date: 20170426
  Receipt Date: 20170426
  Transmission Date: 20170830
  Serious: Yes (Hospitalization)
  Sender: FDA-Public Use
  Company Number: FR-PFIZER INC-2017175946

PATIENT
  Age: 69 Year
  Sex: Male

DRUGS (6)
  1. GEMCITABINE HYDROCHLORIDE. [Suspect]
     Active Substance: GEMCITABINE HYDROCHLORIDE
     Indication: PANCREATIC CARCINOMA
     Dosage: 2000 MG/ 52.6 ML / CYCLE
     Route: 042
     Dates: start: 20160930, end: 20161007
  2. GEMCITABINE HYDROCHLORIDE. [Suspect]
     Active Substance: GEMCITABINE HYDROCHLORIDE
     Dosage: 2000 MG/ 52.6 ML / CYCLE
     Route: 042
     Dates: start: 20161014, end: 20161125
  3. LASILIX /00032601/ [Concomitant]
     Active Substance: FUROSEMIDE
  4. GEMCITABINE HYDROCHLORIDE. [Suspect]
     Active Substance: GEMCITABINE HYDROCHLORIDE
     Dosage: 2000 MG/ 52.6 ML / CYCLE
     Route: 042
     Dates: start: 20161202, end: 20170106
  5. GEMCITABINE HYDROCHLORIDE. [Suspect]
     Active Substance: GEMCITABINE HYDROCHLORIDE
     Dosage: 2000 MG/ 52.6 ML / CYCLE
     Route: 042
     Dates: start: 20170120, end: 20170303
  6. CREON [Suspect]
     Active Substance: PANCRELIPASE AMYLASE\PANCRELIPASE LIPASE\PANCRELIPASE PROTEASE
     Dosage: 2 DF, 3X/DAY
     Route: 048

REACTIONS (2)
  - Anaemia [Unknown]
  - Thrombotic microangiopathy [Not Recovered/Not Resolved]

NARRATIVE: CASE EVENT DATE: 2017
